FAERS Safety Report 5626067-0 (Version None)
Quarter: 2008Q1

REPORT INFORMATION
  Report Type: 
  Country: None (occurrence: None)
  Receive Date: 20080211
  Receipt Date: 20080123
  Transmission Date: 20080703
  Serious: Yes (Other)
  Sender: FDA-Public Use
  Company Number: 2008JP000517

PATIENT
  Age: 39 Year
  Sex: Female

DRUGS (2)
  1. PROGRAF [Suspect]
     Indication: LIVER TRANSPLANT
  2. MIZORIBINE (MIZORIBINE) FORMULATION UNKNOWN [Concomitant]

REACTIONS (5)
  - ACCIDENTAL EXPOSURE [None]
  - ANAEMIA [None]
  - EPILEPSY [None]
  - INCORRECT DOSE ADMINISTERED [None]
  - THROMBOTIC MICROANGIOPATHY [None]
